FAERS Safety Report 22944025 (Version 7)
Quarter: 2024Q2

REPORT INFORMATION
  Report Type: Spontaneous
  Country: US (occurrence: US)
  Receive Date: 20230914
  Receipt Date: 20240424
  Transmission Date: 20240716
  Serious: Yes (Other)
  Sender: FDA-Public Use
  Company Number: US-PFIZER INC-PV202300144344

PATIENT
  Age: 81 Year
  Sex: Female
  Weight: 72.57 kg

DRUGS (2)
  1. IBRANCE [Suspect]
     Active Substance: PALBOCICLIB
     Indication: Breast cancer stage IV
     Dosage: 125 MG, DAILY (TAKE 1 TABLET DAILY FOR 30 DAYS)
  2. IBRANCE [Suspect]
     Active Substance: PALBOCICLIB
     Dosage: 125 MG, CYCLIC (EVERY DAY FOR 3 WEEKS ON AND 1 WEEK OFF)

REACTIONS (9)
  - Cytokine release syndrome [Unknown]
  - Weight decreased [Unknown]
  - Off label use [Unknown]
  - Product storage error [Unknown]
  - Product dose omission in error [Unknown]
  - Amnesia [Unknown]
  - Nausea [Unknown]
  - Feeding disorder [Unknown]
  - Taste disorder [Unknown]
